FAERS Safety Report 12473950 (Version 1)
Quarter: 2016Q2

REPORT INFORMATION
  Report Type: Spontaneous
  Country: US (occurrence: US)
  Receive Date: 20160616
  Receipt Date: 20160616
  Transmission Date: 20160815
  Serious: No
  Sender: FDA-Public Use
  Company Number: ALCN2016US004224

PATIENT
  Sex: Female

DRUGS (1)
  1. GENTEAL MILD [Suspect]
     Active Substance: HYPROMELLOSE 2910 (4000 MPA.S)
     Indication: DRY EYE
     Dosage: UNK
     Route: 047
     Dates: start: 20160604

REACTIONS (2)
  - Superficial injury of eye [Recovered/Resolved]
  - Product dropper issue [Recovered/Resolved]

NARRATIVE: CASE EVENT DATE: 20160607
